FAERS Safety Report 16329237 (Version 1)
Quarter: 2019Q2

REPORT INFORMATION
  Report Type: Spontaneous
  Country: US (occurrence: US)
  Receive Date: 20190520
  Receipt Date: 20190520
  Transmission Date: 20190711
  Serious: No
  Sender: FDA-Public Use
  Company Number: US-ASTRAZENECA-2019SE70947

PATIENT
  Age: 23547 Day
  Sex: Female
  Weight: 106.1 kg

DRUGS (4)
  1. BYDUREON [Suspect]
     Active Substance: EXENATIDE
     Indication: BLOOD GLUCOSE DECREASED
     Route: 058
     Dates: start: 20190429
  2. PRAVASTATIN. [Concomitant]
     Active Substance: PRAVASTATIN
     Indication: BLOOD CHOLESTEROL DECREASED
     Route: 048
  3. LISINOPRIL. [Suspect]
     Active Substance: LISINOPRIL
     Indication: CARDIAC DISORDER
     Route: 048
     Dates: start: 2017
  4. NAPROXEN. [Concomitant]
     Active Substance: NAPROXEN
     Indication: ARTHRITIS
     Route: 048

REACTIONS (11)
  - Eructation [Recovering/Resolving]
  - Chills [Recovered/Resolved]
  - Gastroenteritis viral [Not Recovered/Not Resolved]
  - Asthenia [Not Recovered/Not Resolved]
  - Vomiting [Recovered/Resolved]
  - Nausea [Recovering/Resolving]
  - Fatigue [Not Recovered/Not Resolved]
  - Blood glucose decreased [Unknown]
  - Nasopharyngitis [Not Recovered/Not Resolved]
  - Influenza [Recovered/Resolved]
  - Dyspepsia [Recovering/Resolving]

NARRATIVE: CASE EVENT DATE: 20190430
